FAERS Safety Report 23130316 (Version 1)
Quarter: 2023Q4

REPORT INFORMATION
  Report Type: Spontaneous
  Country: US (occurrence: None)
  Receive Date: 20231031
  Receipt Date: 20231031
  Transmission Date: 20240109
  Serious: Yes (Hospitalization)
  Sender: FDA-Public Use
  Company Number: None

PATIENT
  Sex: Female

DRUGS (25)
  1. TOLVAPTAN [Suspect]
     Active Substance: TOLVAPTAN
     Indication: Inappropriate antidiuretic hormone secretion
     Dosage: FREQUENCY : EVERY OTHER DAY;?
     Route: 048
     Dates: start: 20220225
  2. TOLVAPTAN [Suspect]
     Active Substance: TOLVAPTAN
     Dosage: FREQUENCY : EVERY OTHER DAY;?
     Route: 048
  3. ALPRAZOLAM [Concomitant]
  4. ATORVASTATIN [Concomitant]
     Active Substance: ATORVASTATIN
  5. BETHANECHOL [Concomitant]
     Active Substance: BETHANECHOL
  6. CLOPIDOREL [Concomitant]
  7. CYMBALTA [Concomitant]
  8. FERROUS SULFATE [Concomitant]
     Active Substance: FERROUS SULFATE
  9. FLUTICASONE [Concomitant]
  10. LAMICTAL [Concomitant]
  11. LISINOPRIL [Concomitant]
  12. MECLIZINE [Concomitant]
  13. METOCLOPRAM [Concomitant]
  14. MONTELUKAST [Concomitant]
     Active Substance: MONTELUKAST SODIUM
  15. NEXIUM [Concomitant]
  16. PERCOCET [Concomitant]
  17. PREGABALIN [Concomitant]
  18. REGLAN [Concomitant]
     Active Substance: METOCLOPRAMIDE HYDROCHLORIDE
  19. RESTASIS [Concomitant]
     Active Substance: CYCLOSPORINE
  20. SAMSCA [Concomitant]
     Active Substance: TOLVAPTAN
  21. SEROQUEL [Concomitant]
  22. SINGULAIR [Concomitant]
     Active Substance: MONTELUKAST SODIUM
  23. VALACYCLOVIR [Concomitant]
     Active Substance: VALACYCLOVIR HYDROCHLORIDE
  24. WAL-FEX [Concomitant]
  25. XANAX [Concomitant]
     Active Substance: ALPRAZOLAM

REACTIONS (2)
  - Cardiac failure [None]
  - Atrial fibrillation [None]
